FAERS Safety Report 5626601-0 (Version None)
Quarter: 2008Q1

REPORT INFORMATION
  Report Type: 
  Country: None (occurrence: None)
  Receive Date: 20080214
  Receipt Date: 20080206
  Transmission Date: 20080703
  Serious: Yes (Other)
  Sender: FDA-Public Use
  Company Number: ES-WYE-G00729407

PATIENT
  Age: 30 Year
  Sex: Female

DRUGS (3)
  1. TAZOCEL [Suspect]
     Indication: LIVER ABSCESS
     Route: 042
     Dates: start: 20070821, end: 20070903
  2. PARACETAMOL [Concomitant]
     Route: 042
     Dates: start: 20070821, end: 20070903
  3. ESKAZOLE [Suspect]
     Indication: FASCIOLIASIS
     Route: 048
     Dates: start: 20070821, end: 20070827

REACTIONS (2)
  - HEPATOCELLULAR INJURY [None]
  - HYPERBILIRUBINAEMIA [None]
